FAERS Safety Report 12948522 (Version 1)
Quarter: 2016Q4

REPORT INFORMATION
  Report Type: Spontaneous
  Country: US (occurrence: US)
  Receive Date: 20161117
  Receipt Date: 20161117
  Transmission Date: 20170207
  Serious: No
  Sender: FDA-Public Use
  Company Number: US-DRREDDYS-USA/USA/16/0077928

PATIENT
  Sex: Female
  Weight: 81.19 kg

DRUGS (2)
  1. FAMOTIDINE OTC [Suspect]
     Active Substance: FAMOTIDINE
     Indication: DYSPEPSIA
     Route: 048
     Dates: start: 20160218, end: 20160302
  2. ALKA-SELTZER [Suspect]
     Active Substance: ANHYDROUS CITRIC ACID\ASPIRIN\SODIUM BICARBONATE
     Indication: DYSPEPSIA
     Route: 048
     Dates: start: 20160210, end: 20160305

REACTIONS (2)
  - Product quality issue [Unknown]
  - Drug ineffective [Unknown]
